FAERS Safety Report 11578084 (Version 2)
Quarter: 2015Q4

REPORT INFORMATION
  Report Type: Report from Study
  Country: KR (occurrence: KR)
  Receive Date: 20150930
  Receipt Date: 20151109
  Transmission Date: 20160304
  Serious: No
  Sender: FDA-Public Use
  Company Number: PHHY2015KR113101

PATIENT
  Age: 47 Year
  Sex: Male

DRUGS (10)
  1. TASIGNA [Suspect]
     Active Substance: NILOTINIB
     Indication: CHRONIC MYELOID LEUKAEMIA
     Dosage: 600 MG, QD
     Route: 048
     Dates: start: 20140522, end: 20141230
  2. BUSPAR [Concomitant]
     Active Substance: BUSPIRONE HYDROCHLORIDE
     Indication: ANXIETY
     Dosage: 10 MG, UNK
     Route: 048
     Dates: start: 20140601
  3. ATIVAN [Concomitant]
     Active Substance: LORAZEPAM
     Indication: INSOMNIA
     Dosage: 0.5 MG, UNK
     Route: 048
     Dates: start: 20140531, end: 20150622
  4. TRITTICO [Concomitant]
     Active Substance: TRAZODONE HYDROCHLORIDE
     Indication: INSOMNIA
     Dosage: 25 MG, UNK
     Route: 048
     Dates: start: 20140531, end: 20150622
  5. QROTIN [Concomitant]
     Indication: NIGHT BLINDNESS
     Dosage: 170 MG, UNK
     Route: 048
     Dates: start: 20140605, end: 20140922
  6. PANTOLOC//PANTOPRAZOLE SODIUM SESQUIHYDRATE [Concomitant]
     Active Substance: PANTOPRAZOLE SODIUM
     Indication: GASTRIC ULCER
     Dosage: 40 MG, UNK
     Route: 048
     Dates: start: 20140513, end: 20140811
  7. ALLOPURINOL. [Concomitant]
     Active Substance: ALLOPURINOL
     Indication: GOUT
     Dosage: 300 MG, UNK
     Route: 048
     Dates: start: 20140516, end: 20140605
  8. MULEX [Concomitant]
     Indication: ATAXIA
     Dosage: 150 MG, UNK
     Route: 048
     Dates: start: 20141209
  9. GELMA [Concomitant]
     Indication: GASTRIC ULCER
     Dosage: 10 G, UNK
     Route: 048
     Dates: start: 20140516
  10. NEUROCARN [Concomitant]
     Indication: ATAXIA
     Dosage: 1000 MG, UNK
     Route: 048
     Dates: start: 20141021, end: 20141210

REACTIONS (2)
  - Herpes zoster [Recovered/Resolved]
  - Gait disturbance [Recovered/Resolved]

NARRATIVE: CASE EVENT DATE: 20140522
